FAERS Safety Report 5087375-8 (Version None)
Quarter: 2006Q3

REPORT INFORMATION
  Report Type: 
  Country: None (occurrence: None)
  Receive Date: 20060824
  Receipt Date: 20060807
  Transmission Date: 20061208
  Serious: Yes (Other)
  Sender: FDA-Public Use
  Company Number: PHBS2006BR12239

PATIENT
  Age: 73 Year
  Sex: Male

DRUGS (5)
  1. TRANSFUSIONS [Concomitant]
  2. DESFERAL [Suspect]
     Dosage: 1 APPLICATION EVERY MONTH
     Route: 042
     Dates: start: 20030401, end: 20050401
  3. DESFERAL [Suspect]
     Dosage: UNK, 5 DAYS PER WEEK
     Route: 058
     Dates: start: 20050501
  4. BACTRIM [Concomitant]
     Dosage: SOMETIMES MONDAY AND TUESDAY
     Route: 048
  5. BACTRIM [Concomitant]
     Route: 048
     Dates: start: 20060501

REACTIONS (6)
  - ANAEMIA [None]
  - BONE MARROW FAILURE [None]
  - HAEMOGLOBIN DECREASED [None]
  - NEUTROPENIA [None]
  - RED BLOOD CELL COUNT DECREASED [None]
  - THROMBOCYTOPENIA [None]
